FAERS Safety Report 20190095 (Version 1)
Quarter: 2021Q4

REPORT INFORMATION
  Report Type: Spontaneous
  Country: US (occurrence: US)
  Receive Date: 20211215
  Receipt Date: 20211215
  Transmission Date: 20220303
  Serious: Yes (Hospitalization)
  Sender: FDA-Public Use
  Company Number: US-BoehringerIngelheim-2021-BI-143847

PATIENT
  Age: 60 Year
  Sex: Female

DRUGS (1)
  1. TRADJENTA [Suspect]
     Active Substance: LINAGLIPTIN
     Indication: Diabetes mellitus
     Dosage: 1 PER MOUTH DAILY
     Route: 048
     Dates: start: 20190101

REACTIONS (1)
  - Gait disturbance [Recovered/Resolved]

NARRATIVE: CASE EVENT DATE: 20211201
